FAERS Safety Report 5618910-6 (Version None)
Quarter: 2008Q1

REPORT INFORMATION
  Report Type: 
  Country: None (occurrence: None)
  Receive Date: 20080205
  Receipt Date: 20080129
  Transmission Date: 20080703
  Serious: No
  Sender: FDA-Public Use
  Company Number: 2008SP000879

PATIENT
  Age: 72 Year
  Sex: Female
  Weight: 87.5442 kg

DRUGS (2)
  1. MIRALAX [Suspect]
     Indication: CONSTIPATION
     Dosage: 1 DF; HS; PO
     Route: 048
     Dates: start: 20071101, end: 20071225
  2. VICODIN [Concomitant]

REACTIONS (1)
  - FAECES DISCOLOURED [None]
